FAERS Safety Report 4421821-5 (Version None)
Quarter: 2004Q3

REPORT INFORMATION
  Report Type: 
  Country: None (occurrence: None)
  Receive Date: 20040806
  Receipt Date: 20040721
  Transmission Date: 20050211
  Serious: No
  Sender: FDA-Public Use
  Company Number: 2004-BP-05535BP

PATIENT
  Age: 78 Year
  Sex: Female
  Weight: 63.5 kg

DRUGS (1)
  1. SPIRIVA [Suspect]
     Indication: EMPHYSEMA
     Dosage: 18 MCG (18 MCG, 18 MCG ONCE)
     Dates: end: 20040706

REACTIONS (5)
  - ASTHENIA [None]
  - HEADACHE [None]
  - LOGORRHOEA [None]
  - NERVOUSNESS [None]
  - SPEECH DISORDER [None]
